FAERS Safety Report 10269911 (Version 1)
Quarter: 2014Q2

REPORT INFORMATION
  Report Type: Spontaneous
  Country: US (occurrence: None)
  Receive Date: 20140626
  Receipt Date: 20140626
  Transmission Date: 20141212
  Serious: Yes (Other)
  Sender: FDA-Public Use
  Company Number: ZYD-14-AE-184

PATIENT
  Age: 75 Year
  Sex: Male

DRUGS (5)
  1. LISINOPRIL [Concomitant]
  2. BYSTOLIC [Concomitant]
  3. SIMVASTATIN [Concomitant]
  4. TESTOSTERONE [Concomitant]
  5. OMEPRAZOLE DR [Suspect]
     Indication: GASTROOESOPHAGEAL REFLUX DISEASE
     Route: 048
     Dates: start: 20140620, end: 20140620

REACTIONS (3)
  - Heart rate decreased [None]
  - Urticaria [None]
  - Fall [None]
